FAERS Safety Report 10189637 (Version 1)
Quarter: 2014Q2

REPORT INFORMATION
  Report Type: Spontaneous
  Country: GB (occurrence: GB)
  Receive Date: 20140522
  Receipt Date: 20140522
  Transmission Date: 20141212
  Serious: Yes (Disabling)
  Sender: FDA-Public Use
  Company Number: GB-GLAXOSMITHKLINE-B0995808A

PATIENT
  Age: 66 Year
  Sex: Male
  Weight: 85 kg

DRUGS (6)
  1. ACITRETIN [Suspect]
     Indication: PSORIASIS
     Dosage: 20MG PER DAY
     Route: 048
     Dates: start: 20140311, end: 20140404
  2. FELODIPINE [Concomitant]
  3. TAMSULOSIN [Concomitant]
  4. SIMVASTATIN [Concomitant]
  5. PERINDOPRIL [Concomitant]
  6. OMEPRAZOLE [Concomitant]

REACTIONS (4)
  - Headache [Recovered/Resolved]
  - Chills [Recovered/Resolved]
  - Malaise [Recovered/Resolved]
  - Dyspnoea exertional [Recovered/Resolved]
